FAERS Safety Report 21549768 (Version 1)
Quarter: 2022Q4

REPORT INFORMATION
  Report Type: Spontaneous
  Country: GB (occurrence: GB)
  Receive Date: 20221103
  Receipt Date: 20221103
  Transmission Date: 20230112
  Serious: Yes (Death, Hospitalization, Other)
  Sender: FDA-Public Use
  Company Number: GB-BAYER-2022P008150

PATIENT
  Age: 89 Year
  Sex: Female

DRUGS (2)
  1. RIFAMPIN [Interacting]
     Active Substance: RIFAMPIN
     Indication: Infection
     Dosage: UNK
  2. RIVAROXABAN [Interacting]
     Active Substance: RIVAROXABAN
     Indication: Atrial fibrillation
     Dosage: UNK

REACTIONS (3)
  - Embolic stroke [Fatal]
  - Infection [Unknown]
  - Drug interaction [Unknown]

NARRATIVE: CASE EVENT DATE: 20210805
